FAERS Safety Report 6678279-5 (Version None)
Quarter: 2010Q2

REPORT INFORMATION
  Report Type: 
  Country: None (occurrence: None)
  Receive Date: 20100408
  Receipt Date: 20100408
  Transmission Date: 20101027
  Serious: Yes (Hospitalization)
  Sender: FDA-Public Use
  Company Number: None

PATIENT
  Sex: Female
  Weight: 79.8331 kg

DRUGS (2)
  1. SAVELLA [Suspect]
     Indication: FIBROMYALGIA
     Dosage: 12.5MG TWICE A DAY PO
     Route: 048
     Dates: start: 20100326, end: 20100327
  2. . [Concomitant]

REACTIONS (1)
  - PANCREATITIS ACUTE [None]
